FAERS Safety Report 10963168 (Version 1)
Quarter: 2015Q1

REPORT INFORMATION
  Report Type: Spontaneous
  Country: US (occurrence: US)
  Receive Date: 20150205
  Receipt Date: 20150205
  Transmission Date: 20150721
  Serious: Yes (Death)
  Sender: FDA-Public Use
  Company Number: US-APOTEX-2015AP006145

PATIENT
  Age: 42 Year
  Sex: Female

DRUGS (3)
  1. MIDAZOLAM HCL [Suspect]
     Active Substance: MIDAZOLAM HYDROCHLORIDE
  2. TRAMADOL HYDROCHLORIDE. [Suspect]
     Active Substance: TRAMADOL HYDROCHLORIDE
  3. CURARE ALKALOIDS [Suspect]
     Active Substance: CURARE

REACTIONS (1)
  - Completed suicide [Fatal]
